FAERS Safety Report 6739513-6 (Version None)
Quarter: 2010Q2

REPORT INFORMATION
  Report Type: 
  Country: None (occurrence: None)
  Receive Date: 20100521
  Receipt Date: 20100511
  Transmission Date: 20101027
  Serious: Yes (Other)
  Sender: FDA-Public Use
  Company Number: 7004603

PATIENT
  Age: 51 Year
  Sex: Female
  Weight: 81 kg

DRUGS (2)
  1. REBIF [Suspect]
     Indication: MULTIPLE SCLEROSIS
     Dosage: 8.8 MCG, 3 IN 1 WK, SUBCUTANEOUS; 22 MCG, 3 IN 1 WK, SUBCUTANEOUS
     Route: 058
     Dates: start: 20100426, end: 20100101
  2. REBIF [Suspect]
     Indication: MULTIPLE SCLEROSIS
     Dosage: 8.8 MCG, 3 IN 1 WK, SUBCUTANEOUS; 22 MCG, 3 IN 1 WK, SUBCUTANEOUS
     Route: 058
     Dates: start: 20100101

REACTIONS (9)
  - ACNE [None]
  - ARTHRALGIA [None]
  - ERYTHEMA [None]
  - FATIGUE [None]
  - INJECTION SITE REACTION [None]
  - INJECTION SITE SWELLING [None]
  - MYALGIA [None]
  - PALPITATIONS [None]
  - TYPE 2 DIABETES MELLITUS [None]
